FAERS Safety Report 8095317-6 (Version None)
Quarter: 2012Q1

REPORT INFORMATION
  Report Type: 
  Country: None (occurrence: None)
  Receive Date: 20120126
  Receipt Date: 20120110
  Transmission Date: 20120608
  Serious: Yes (Other)
  Sender: FDA-Public Use
  Company Number: FK201200121

PATIENT
  Age: 45 Year
  Sex: Male

DRUGS (1)
  1. OXALIPLATIN [Suspect]
     Indication: COLON CANCER
     Dosage: 80 MG/M2

REACTIONS (8)
  - PRINZMETAL ANGINA [None]
  - DYSPNOEA [None]
  - CHEST DISCOMFORT [None]
  - CONFUSIONAL STATE [None]
  - ARTERIOSPASM CORONARY [None]
  - KOUNIS SYNDROME [None]
  - HYPERHIDROSIS [None]
  - HYPOTENSION [None]
